FAERS Safety Report 7438014-X (Version None)
Quarter: 2011Q2

REPORT INFORMATION
  Report Type: 
  Country: None (occurrence: None)
  Receive Date: 20110426
  Receipt Date: 20100830
  Transmission Date: 20111010
  Serious: No
  Sender: FDA-Public Use
  Company Number: US-MYLANLABS-2010S1014193

PATIENT
  Sex: Female

DRUGS (1)
  1. NITROFURANTOIN (MONOHYDRATE/MACROCRYSTALS) [Suspect]
     Indication: URINARY TRACT INFECTION
     Route: 048
     Dates: start: 20100730, end: 20100808

REACTIONS (8)
  - VOMITING [None]
  - NAUSEA [None]
  - CHILLS [None]
  - COUGH [None]
  - PYREXIA [None]
  - PURPURA [None]
  - DYSPEPSIA [None]
  - DIZZINESS [None]
